FAERS Safety Report 9726219 (Version 2)
Quarter: 2013Q4

REPORT INFORMATION
  Report Type: Report from Study
  Country: US (occurrence: US)
  Receive Date: 20131203
  Receipt Date: 20131203
  Transmission Date: 20140711
  Serious: Yes (Other)
  Sender: FDA-Public Use
  Company Number: US-ABBVIE-13P-163-1070773-00

PATIENT
  Sex: Female
  Weight: 79.45 kg

DRUGS (10)
  1. HUMIRA [Suspect]
     Indication: RHEUMATOID ARTHRITIS
     Route: 058
     Dates: start: 2007, end: 201306
  2. HUMIRA [Suspect]
     Route: 058
     Dates: start: 201307
  3. FISH OIL [Concomitant]
     Indication: BLOOD CHOLESTEROL INCREASED
  4. FOLIC ACID [Concomitant]
     Indication: VITAMIN SUPPLEMENTATION
  5. VITAMIN B12 [Concomitant]
     Indication: VITAMIN SUPPLEMENTATION
  6. SYNTHROID [Concomitant]
     Indication: HYPOTHYROIDISM
  7. ASPIRIN [Concomitant]
     Indication: PRODUCT USED FOR UNKNOWN INDICATION
  8. MULTIVITAMIN [Concomitant]
     Indication: VITAMIN SUPPLEMENTATION
  9. CALCIUM [Concomitant]
     Indication: VITAMIN SUPPLEMENTATION
  10. UNKNOWN CHOLESTEROL MEDICATION [Concomitant]
     Indication: BLOOD CHOLESTEROL INCREASED

REACTIONS (10)
  - Heart rate decreased [Recovering/Resolving]
  - Basal cell carcinoma [Recovered/Resolved]
  - Eructation [Recovered/Resolved]
  - Gastrooesophageal reflux disease [Recovering/Resolving]
  - Sinus congestion [Not Recovered/Not Resolved]
  - Acrochordon [Recovered/Resolved]
  - Dysphonia [Not Recovered/Not Resolved]
  - Sinus congestion [Not Recovered/Not Resolved]
  - Gastrointestinal stromal tumour [Recovered/Resolved]
  - Abdominal pain [Recovered/Resolved]
